FAERS Safety Report 18608383 (Version 2)
Quarter: 2020Q4

REPORT INFORMATION
  Report Type: Report from Study
  Country: IT (occurrence: IT)
  Receive Date: 20201212
  Receipt Date: 20201217
  Transmission Date: 20210114
  Serious: Yes (Other)
  Sender: FDA-Public Use
  Company Number: IT-JNJFOC-20201217546

PATIENT
  Age: 90 Year
  Sex: Female

DRUGS (1)
  1. RIVAROXABAN [Suspect]
     Active Substance: RIVAROXABAN
     Indication: ATRIAL FIBRILLATION
     Dosage: 15 MG, QD
     Route: 048
     Dates: start: 20190601

REACTIONS (5)
  - Pain [Recovering/Resolving]
  - Headache [Recovering/Resolving]
  - Haematoma [Recovering/Resolving]
  - Head injury [Recovering/Resolving]
  - Accident [Recovering/Resolving]

NARRATIVE: CASE EVENT DATE: 20200907
